FAERS Safety Report 17076037 (Version 1)
Quarter: 2019Q4

REPORT INFORMATION
  Report Type: Spontaneous
  Country: DE (occurrence: DE)
  Receive Date: 20191126
  Receipt Date: 20191126
  Transmission Date: 20200122
  Serious: Yes (Hospitalization, Other)
  Sender: FDA-Public Use
  Company Number: DE-IBIGEN-2019.07633

PATIENT
  Age: 44 Year
  Sex: Female

DRUGS (2)
  1. TOBRAMYCIN. [Suspect]
     Active Substance: TOBRAMYCIN
     Indication: STENOTROPHOMONAS INFECTION
     Dosage: IV, 340 MG/DAY, FOR 14 DAYS
     Route: 042
  2. PIPERACILLIN AND TAZOBACTAM [Suspect]
     Active Substance: PIPERACILLIN SODIUM\TAZOBACTAM SODIUM
     Indication: STENOTROPHOMONAS INFECTION
     Dosage: IV, 4.5 G THREE A DAY, FOR 14 DAYS
     Route: 042

REACTIONS (5)
  - Haemolytic anaemia [Recovered/Resolved]
  - Reticulocyte count increased [Recovered/Resolved]
  - Haemoglobin decreased [Recovered/Resolved]
  - Haptoglobin increased [Recovered/Resolved]
  - Blood lactate dehydrogenase increased [Recovered/Resolved]
